FAERS Safety Report 25684879 (Version 1)
Quarter: 2025Q3

REPORT INFORMATION
  Report Type: Spontaneous
  Country: US (occurrence: US)
  Receive Date: 20250815
  Receipt Date: 20250815
  Transmission Date: 20251020
  Serious: Yes (Other)
  Sender: AMGEN
  Company Number: US-AMGEN-USASP2025157775

PATIENT
  Age: 80 Year
  Sex: Male

DRUGS (7)
  1. PREDNISONE [Suspect]
     Active Substance: PREDNISONE
     Indication: Hyperthyroidism
     Dosage: 40 MILLIGRAM, QD
     Route: 065
  2. PREDNISONE [Suspect]
     Active Substance: PREDNISONE
     Dosage: 10 MILLIGRAM, QD
     Route: 065
  3. AMIODARONE [Concomitant]
     Active Substance: AMIODARONE
     Indication: Atrial fibrillation
     Dosage: 200 MILLIGRAM, BID
  4. AMIODARONE [Concomitant]
     Active Substance: AMIODARONE
  5. FUROSEMIDE [Concomitant]
     Active Substance: FUROSEMIDE
  6. DRONEDARONE [Concomitant]
     Active Substance: DRONEDARONE
     Route: 065
  7. SODIUM IODIDE I-131 [Concomitant]
     Active Substance: SODIUM IODIDE I-131

REACTIONS (9)
  - Atrial fibrillation [Unknown]
  - Hypothyroidism [Unknown]
  - Drug effective for unapproved indication [Unknown]
  - Dyspnoea [Unknown]
  - Weight increased [Unknown]
  - Fatigue [Unknown]
  - Palpitations [Unknown]
  - Blood thyroid stimulating hormone increased [Recovered/Resolved]
  - Off label use [Unknown]
